FAERS Safety Report 25265770 (Version 2)
Quarter: 2025Q3

REPORT INFORMATION
  Report Type: Spontaneous
  Country: US (occurrence: US)
  Receive Date: 20250503
  Receipt Date: 20250702
  Transmission Date: 20251020
  Serious: No
  Sender: TOLMAR
  Company Number: US-Tolmar-TLM-2025-00038

PATIENT
  Age: 60 Year
  Sex: Male
  Weight: 119 kg

DRUGS (3)
  1. ELIGARD [Suspect]
     Active Substance: LEUPROLIDE ACETATE
     Indication: Prostate cancer
     Dosage: EXPIRATION DATE- AUG-2026; UNK; UNK. ?DOSE WAS NOT ADMINISTERED.
     Route: 065
  2. ELIGARD [Suspect]
     Active Substance: LEUPROLIDE ACETATE
     Route: 065
  3. DEVICE [Suspect]
     Active Substance: DEVICE
     Indication: Prostate cancer

REACTIONS (2)
  - Intercepted product administration error [Unknown]
  - Syringe issue [Unknown]
